FAERS Safety Report 7893774-9 (Version None)
Quarter: 2011Q4

REPORT INFORMATION
  Report Type: 
  Country: None (occurrence: None)
  Receive Date: 20111104
  Receipt Date: 20111101
  Transmission Date: 20120403
  Serious: Yes (Other)
  Sender: FDA-Public Use
  Company Number: US-AMGEN-USASP2011056681

PATIENT
  Age: 71 Year
  Sex: Female

DRUGS (1)
  1. ENBREL [Suspect]
     Indication: RHEUMATOID ARTHRITIS
     Dosage: 50 MG, UNK
     Dates: start: 20040301, end: 20110801

REACTIONS (4)
  - ARTHRALGIA [None]
  - LABORATORY TEST ABNORMAL [None]
  - RHEUMATOID FACTOR [None]
  - CARPAL TUNNEL SYNDROME [None]
